FAERS Safety Report 19480307 (Version 1)
Quarter: 2021Q3

REPORT INFORMATION
  Report Type: Other
  Country: ES (occurrence: ES)
  Receive Date: 20210701
  Receipt Date: 20210701
  Transmission Date: 20211014
  Serious: Yes (Other)
  Sender: FDA-Public Use
  Company Number: ES-ALLIED PHARMA-000078

PATIENT
  Age: 78 Year
  Sex: Female

DRUGS (1)
  1. FLUOCINOLONE [Suspect]
     Active Substance: FLUOCINOLONE
     Indication: PRODUCT USED FOR UNKNOWN INDICATION
     Dosage: FLUOCINOLONE OINTMENT ONCE A DAY FOR?MONTHS

REACTIONS (5)
  - Telangiectasia [Unknown]
  - Skin wrinkling [Unknown]
  - Actinic keratosis [Unknown]
  - Skin atrophy [Unknown]
  - Pigmentation disorder [Unknown]
